FAERS Safety Report 9769295 (Version 1)
Quarter: 2013Q4

REPORT INFORMATION
  Report Type: Spontaneous
  Country: US (occurrence: None)
  Receive Date: 20131209
  Receipt Date: 20131209
  Transmission Date: 20140711
  Serious: Yes (Other)
  Sender: FDA-Public Use
  Company Number: AEUSA201300425

PATIENT
  Age: 46 Year
  Sex: Female
  Weight: 46.72 kg

DRUGS (5)
  1. GAMASTAN [Suspect]
     Indication: IMMUNODEFICIENCY
     Route: 030
  2. ASPIRIN [Concomitant]
  3. PLAVIX [Concomitant]
  4. COUMADIN /00014802/ [Concomitant]
  5. DIALYSIS MEDS [Concomitant]

REACTIONS (2)
  - Cerebrovascular accident [None]
  - Myocardial infarction [None]
